FAERS Safety Report 20985938 (Version 1)
Quarter: 2022Q2

REPORT INFORMATION
  Report Type: Spontaneous
  Country: US (occurrence: None)
  Receive Date: 20220617
  Receipt Date: 20220617
  Transmission Date: 20220721
  Serious: No
  Sender: FDA-Public Use
  Company Number: None

PATIENT
  Sex: Female

DRUGS (1)
  1. SELZENTRY [Suspect]
     Active Substance: MARAVIROC
     Indication: COVID-19
     Dosage: 300MG TWICE DAILY ORAL?
     Route: 048
     Dates: start: 20220502

REACTIONS (3)
  - Swelling face [None]
  - Lip swelling [None]
  - Rash [None]
